FAERS Safety Report 4344770-X (Version None)
Quarter: 2004Q2

REPORT INFORMATION
  Report Type: 
  Country: None (occurrence: None)
  Receive Date: 20040423
  Receipt Date: 20030924
  Transmission Date: 20050107
  Serious: No
  Sender: FDA-Public Use
  Company Number: US-GLAXOSMITHKLINE-A0427356A

PATIENT
  Sex: Male
  Weight: 102.3 kg

DRUGS (1)
  1. LEUKERAN [Suspect]
     Indication: ILL-DEFINED DISORDER
     Route: 048

REACTIONS (2)
  - NAUSEA [None]
  - STOMACH DISCOMFORT [None]
